FAERS Safety Report 16815722 (Version 1)
Quarter: 2019Q3

REPORT INFORMATION
  Report Type: Spontaneous
  Country: US (occurrence: US)
  Receive Date: 20190917
  Receipt Date: 20190917
  Transmission Date: 20191005
  Serious: No
  Sender: FDA-Public Use
  Company Number: US-ALLERGAN-1912269US

PATIENT
  Age: 71 Year
  Sex: Female

DRUGS (6)
  1. PHENDIMETRAZINE TARTRATE. [Suspect]
     Active Substance: PHENDIMETRAZINE TARTRATE
     Indication: WEIGHT DECREASED
     Dosage: UNKNOWN
     Route: 065
     Dates: start: 20190214
  2. LINZESS [Suspect]
     Active Substance: LINACLOTIDE
     Indication: IRRITABLE BOWEL SYNDROME
     Dosage: 145 ?G
     Route: 048
  3. STOOL SOFTENER (DOCUSATE) [Concomitant]
     Active Substance: DOCUSATE
     Dosage: 300 MG, QD
     Route: 065
  4. FIBERCON [Concomitant]
     Active Substance: CALCIUM POLYCARBOPHIL
     Indication: CONSTIPATION
     Dosage: UNKNOWN
     Route: 048
  5. CITRUCEL [Concomitant]
     Active Substance: METHYLCELLULOSE (4000 MPA.S)
     Indication: CONSTIPATION
     Dosage: UNKNOWN
     Route: 048
  6. MIRALAX [Concomitant]
     Active Substance: POLYETHYLENE GLYCOL 3350
     Indication: CONSTIPATION
     Dosage: UNKNOWN
     Route: 048
     Dates: start: 20190317

REACTIONS (5)
  - Wrong technique in product usage process [Unknown]
  - Incorrect dose administered [Unknown]
  - Weight decreased [Unknown]
  - Off label use [Unknown]
  - Drug ineffective for unapproved indication [Unknown]

NARRATIVE: CASE EVENT DATE: 20190306
